FAERS Safety Report 15260303 (Version 2)
Quarter: 2018Q3

REPORT INFORMATION
  Report Type: Spontaneous
  Country: US (occurrence: US)
  Receive Date: 20180809
  Receipt Date: 20180820
  Transmission Date: 20181010
  Serious: No
  Sender: FDA-Public Use
  Company Number: US-PFIZER INC-2018317002

PATIENT
  Age: 53 Year
  Sex: Female
  Weight: 51.26 kg

DRUGS (10)
  1. PERCOCET [Concomitant]
     Active Substance: ACETAMINOPHEN\OXYCODONE HYDROCHLORIDE
     Indication: PAIN
     Dosage: UNK, AS NEEDED
  2. OXYCODONE [Concomitant]
     Active Substance: OXYCODONE
     Indication: ANALGESIC THERAPY
     Dosage: UNK, AS NEEDED
  3. LYRICA [Suspect]
     Active Substance: PREGABALIN
     Indication: NEUROPATHY PERIPHERAL
     Dosage: UNK, 1X/DAY
  4. DIAZEPAM. [Concomitant]
     Active Substance: DIAZEPAM
     Indication: MUSCLE DISORDER
     Dosage: 5 MG, 1X/DAY
  5. DIAZEPAM. [Concomitant]
     Active Substance: DIAZEPAM
     Indication: SLEEP DISORDER
  6. OXYCODONE [Concomitant]
     Active Substance: OXYCODONE
     Indication: PAIN
  7. SUDAFED [Concomitant]
     Active Substance: PSEUDOEPHEDRINE HYDROCHLORIDE
     Indication: NASAL CONGESTION
     Dosage: UNK
  8. LYRICA [Suspect]
     Active Substance: PREGABALIN
     Indication: NEURALGIA
     Dosage: 100 MG, 2X/DAY (ONCE IN THE MORNING, ONCE AT NIGHT)
     Route: 048
  9. LYRICA [Suspect]
     Active Substance: PREGABALIN
     Indication: POST HERPETIC NEURALGIA
     Dosage: ALTERNATING DAYS WITH HALF THE DOSE
  10. LYRICA [Suspect]
     Active Substance: PREGABALIN
     Indication: FIBROMYALGIA
     Dosage: 75 MG, UNK

REACTIONS (14)
  - Disease recurrence [Unknown]
  - Intentional product use issue [Unknown]
  - Fatigue [Unknown]
  - Facial pain [Unknown]
  - Headache [Unknown]
  - Insomnia [Unknown]
  - Neck pain [Unknown]
  - Limb discomfort [Unknown]
  - Feeling abnormal [Unknown]
  - Withdrawal syndrome [Not Recovered/Not Resolved]
  - Stress [Unknown]
  - Herpes zoster [Unknown]
  - Decreased appetite [Unknown]
  - Drug ineffective [Unknown]

NARRATIVE: CASE EVENT DATE: 20180715
